FAERS Safety Report 11910924 (Version 1)
Quarter: 2016Q1

REPORT INFORMATION
  Report Type: Spontaneous
  Country: US (occurrence: None)
  Receive Date: 20160111
  Receipt Date: 20160111
  Transmission Date: 20160526
  Serious: No
  Sender: FDA-Public Use
  Company Number: None

PATIENT
  Age: 73 Year
  Sex: Female
  Weight: 106.14 kg

DRUGS (6)
  1. PROSAC [Concomitant]
  2. NEURONTIN [Concomitant]
     Active Substance: GABAPENTIN
  3. CLONAZEPAM. [Concomitant]
     Active Substance: CLONAZEPAM
  4. TRAZODONE [Concomitant]
     Active Substance: TRAZODONE HYDROCHLORIDE
  5. LISINOPRIL. [Concomitant]
     Active Substance: LISINOPRIL
  6. NITROFURANTOIN MONOHYDRATE MACROCRYSTALS [Suspect]
     Active Substance: NITROFURANTOIN\NITROFURANTOIN MONOHYDRATE
     Indication: URINARY TRACT INFECTION
     Dosage: 1 CAPSULE EVERY 12 HOURS
     Route: 048
     Dates: start: 20160106, end: 20160107

REACTIONS (4)
  - Flatulence [None]
  - Diarrhoea [None]
  - Abdominal pain upper [None]
  - Abdominal distension [None]

NARRATIVE: CASE EVENT DATE: 20160107
